FAERS Safety Report 10919963 (Version 1)
Quarter: 2015Q1

REPORT INFORMATION
  Report Type: Spontaneous
  Country: US (occurrence: US)
  Receive Date: 20150317
  Receipt Date: 20150317
  Transmission Date: 20150721
  Serious: Yes (Other)
  Sender: FDA-Public Use
  Company Number: US-JNJFOC-20150218631

PATIENT
  Age: 24 Year
  Sex: Female

DRUGS (2)
  1. TYLENOL EXTRA STRENGTH [Suspect]
     Active Substance: ACETAMINOPHEN
     Indication: ABDOMINAL PAIN
     Dosage: 65 EXTRA STRENGTH TYLENOL TABS OVER THE PAST 3 DAYS; 4 TABS ABOUT EVERY 4 HOURS
     Route: 048
     Dates: start: 20050510
  2. TYLENOL EXTRA STRENGTH [Suspect]
     Active Substance: ACETAMINOPHEN
     Indication: PAIN IN EXTREMITY
     Dosage: 65 EXTRA STRENGTH TYLENOL TABS OVER THE PAST 3 DAYS; 4 TABS ABOUT EVERY 4 HOURS
     Route: 048
     Dates: start: 20050510

REACTIONS (3)
  - Decreased appetite [Unknown]
  - Accidental overdose [Unknown]
  - Vomiting [Unknown]

NARRATIVE: CASE EVENT DATE: 200505
